FAERS Safety Report 4294794-6 (Version None)
Quarter: 2004Q1

REPORT INFORMATION
  Report Type: 
  Country: None (occurrence: None)
  Receive Date: 20040216
  Receipt Date: 20021106
  Transmission Date: 20041129
  Serious: No
  Sender: FDA-Public Use
  Company Number: US-GLAXOSMITHKLINE-A0385794A

PATIENT
  Age: 59 Year
  Sex: Female
  Weight: 50 kg

DRUGS (3)
  1. LAMICTAL [Suspect]
     Dosage: 300MG PER DAY
     Route: 048
     Dates: start: 20020801
  2. LIPITOR [Suspect]
     Route: 065
  3. PHENOBARBITAL TAB [Concomitant]

REACTIONS (1)
  - OESOPHAGEAL DISCOMFORT [None]
